FAERS Safety Report 7688248-4 (Version None)
Quarter: 2011Q3

REPORT INFORMATION
  Report Type: 
  Country: None (occurrence: None)
  Receive Date: 20110817
  Receipt Date: 20110714
  Transmission Date: 20111222
  Serious: No
  Sender: FDA-Public Use
  Company Number: US-GLAXOSMITHKLINE-A0937197A

PATIENT
  Age: 47 Year
  Sex: Male

DRUGS (11)
  1. METFORMIN HCL [Concomitant]
  2. GLIMEPIRIDE [Concomitant]
  3. POTASSIUM PHOSPHATES [Concomitant]
  4. LISINOPRIL AND HYDROCHLOROTHIAZIDE [Concomitant]
  5. LISINOPRIL [Concomitant]
  6. VOTRIENT [Suspect]
     Indication: PRODUCT USED FOR UNKNOWN INDICATION
     Dosage: 800MG PER DAY
     Route: 048
  7. XANAX [Concomitant]
  8. TEKTURNA [Concomitant]
  9. ONGLYZA [Concomitant]
  10. TYLENOL-500 [Concomitant]
  11. AMLODIPINE [Concomitant]

REACTIONS (4)
  - VOMITING [None]
  - DIARRHOEA [None]
  - BLOOD PRESSURE INCREASED [None]
  - FATIGUE [None]
